FAERS Safety Report 4395783-3 (Version None)
Quarter: 2004Q3

REPORT INFORMATION
  Report Type: 
  Country: None (occurrence: None)
  Receive Date: 20040707
  Receipt Date: 20040628
  Transmission Date: 20050211
  Serious: Yes (Life-Threatening)
  Sender: FDA-Public Use
  Company Number: 2004221019NO

PATIENT
  Age: 45 Year
  Sex: Male

DRUGS (8)
  1. FRAGMIN [Suspect]
     Indication: ANGINA UNSTABLE
     Dosage: 9600 U, PRN, SUBCUTANEOUS
     Route: 058
     Dates: start: 20040612, end: 20040613
  2. ASPIRIN [Suspect]
     Indication: MYOCARDIAL INFARCTION
  3. ALBYL-E (ACETYLSALICYLIC ACID, MAGNESIUM OXIDE) [Suspect]
     Indication: MYOCARDIAL INFARCTION
     Dosage: 75 MG, QD, ORAL
     Route: 048
     Dates: start: 20040405, end: 20040617
  4. DISPRIL (ACETYLSALICYLIC ACID) [Suspect]
     Indication: ANGINA UNSTABLE
     Dosage: 300 MG, PRN, ORAL
     Route: 048
     Dates: start: 20040404, end: 20040612
  5. ZOCOR [Concomitant]
  6. SELO-ZOK (METOPROLOL SUCCINATE) [Concomitant]
  7. LIPITOR [Concomitant]
  8. GLUCOPHAGE [Concomitant]

REACTIONS (5)
  - HAEMATEMESIS [None]
  - HAEMOGLOBIN DECREASED [None]
  - LABORATORY TEST ABNORMAL [None]
  - MELAENA [None]
  - SYNCOPE [None]
